FAERS Safety Report 15288023 (Version 1)
Quarter: 2018Q3

REPORT INFORMATION
  Report Type: Report from Study
  Country: None (occurrence: US)
  Receive Date: 20180817
  Receipt Date: 20180817
  Transmission Date: 20181010
  Serious: Yes (Hospitalization, Other)
  Sender: FDA-Public Use
  Company Number: US-ABBVIE-18K-163-2389734-00

PATIENT
  Age: 25 Year
  Sex: Female
  Weight: 90.8 kg

DRUGS (2)
  1. HUMIRA [Suspect]
     Active Substance: ADALIMUMAB
     Indication: HIDRADENITIS
     Route: 058
     Dates: start: 20180521, end: 20180604
  2. CLINDAMYCIN. [Suspect]
     Active Substance: CLINDAMYCIN
     Indication: LOCALISED INFECTION
     Route: 065

REACTIONS (11)
  - Wisdom teeth removal [Recovered/Resolved]
  - Staphylococcal infection [Recovering/Resolving]
  - Trismus [Recovering/Resolving]
  - Hypophagia [Recovered/Resolved]
  - Trismus [Recovered/Resolved]
  - Staphylococcal infection [Recovered/Resolved]
  - Procedural pain [Recovered/Resolved]
  - Nausea [Recovered/Resolved]
  - Blood culture positive [Recovered/Resolved]
  - Tooth extraction [Unknown]
  - Tooth abscess [Recovered/Resolved]

NARRATIVE: CASE EVENT DATE: 20180522
